FAERS Safety Report 8278554-7 (Version None)
Quarter: 2012Q2

REPORT INFORMATION
  Report Type: 
  Country: None (occurrence: None)
  Receive Date: 20120412
  Receipt Date: 20111014
  Transmission Date: 20120825
  Serious: No
  Sender: FDA-Public Use
  Company Number: US-ASTRAZENECA-2011SE62147

PATIENT
  Age: 63 Year
  Sex: Male
  Weight: 72.6 kg

DRUGS (3)
  1. NEXIUM [Suspect]
     Indication: OESOPHAGEAL ULCER
     Route: 048
  2. BETA-BLOCKER [Concomitant]
  3. CLARITIN [Concomitant]

REACTIONS (2)
  - ABDOMINAL DISCOMFORT [None]
  - OFF LABEL USE [None]
